FAERS Safety Report 6131523-5 (Version None)
Quarter: 2009Q1

REPORT INFORMATION
  Report Type: 
  Country: None (occurrence: None)
  Receive Date: 20090325
  Receipt Date: 20081120
  Transmission Date: 20090719
  Serious: No
  Sender: FDA-Public Use
  Company Number: US-BRISTOL-MYERS SQUIBB COMPANY-14341267

PATIENT
  Age: 54 Year
  Sex: Male

DRUGS (9)
  1. ERBITUX [Suspect]
     Indication: RECTAL CANCER
     Route: 042
     Dates: start: 20080708, end: 20080708
  2. OXALIPLATIN [Concomitant]
  3. LEUCOVORIN CALCIUM [Concomitant]
  4. FLUOROURACIL [Concomitant]
  5. KYTRIL [Concomitant]
     Indication: PREMEDICATION
  6. ALBUTEROL [Concomitant]
     Indication: PREMEDICATION
     Route: 055
  7. PEPCID [Concomitant]
     Indication: PREMEDICATION
  8. BENADRYL [Concomitant]
     Indication: PREMEDICATION
  9. SOLU-CORTEF [Concomitant]
     Indication: PREMEDICATION

REACTIONS (5)
  - ADVERSE EVENT [None]
  - BLOOD PRESSURE INCREASED [None]
  - HYPERHIDROSIS [None]
  - PRURITUS [None]
  - SALIVARY HYPERSECRETION [None]
